FAERS Safety Report 16545094 (Version 1)
Quarter: 2019Q3

REPORT INFORMATION
  Report Type: Spontaneous
  Country: SE (occurrence: SE)
  Receive Date: 20190709
  Receipt Date: 20190709
  Transmission Date: 20191004
  Serious: Yes (Hospitalization)
  Sender: FDA-Public Use
  Company Number: IND-SE-009507513-1907SWE000665

PATIENT
  Age: 20 Year
  Sex: Female

DRUGS (3)
  1. COCILLANA ETYFIN (COCILLANA (+) ETHYLMORPHINE HYDROCHLORIDE (+) SENECA [Suspect]
     Active Substance: ETHYLMORPHINE HYDROCHLORIDE\HERBALS
     Dosage: 250 MILLILITER
     Route: 048
     Dates: start: 20190601, end: 20190601
  2. ARCOXIA [Suspect]
     Active Substance: ETORICOXIB
     Dosage: 540 MILLIGRAM (FILM COATED TABLET)
     Route: 048
     Dates: start: 20190601, end: 20190601
  3. CALCICHEW D3 [Suspect]
     Active Substance: CALCIUM\CHOLECALCIFEROL
     Dosage: UNK
     Dates: start: 20190601, end: 20190601

REACTIONS (5)
  - Tremor [Unknown]
  - Coma scale abnormal [Unknown]
  - Speech disorder [Unknown]
  - Intentional overdose [Unknown]
  - Suicide attempt [Unknown]

NARRATIVE: CASE EVENT DATE: 20190601
